FAERS Safety Report 8149734-6 (Version None)
Quarter: 2012Q1

REPORT INFORMATION
  Report Type: 
  Country: None (occurrence: None)
  Receive Date: 20120218
  Receipt Date: 20111123
  Transmission Date: 20120608
  Serious: No
  Sender: FDA-Public Use
  Company Number: US-ALLERGAN-1115435US

PATIENT
  Sex: Female

DRUGS (2)
  1. BOTULINUM TOXIN TYPE A [Suspect]
     Indication: MUSCLE SPASMS
     Dosage: UNK
     Route: 030
  2. BOTULINUM TOXIN TYPE A [Suspect]
     Indication: SPINAL OSTEOARTHRITIS

REACTIONS (2)
  - THERAPEUTIC RESPONSE DECREASED [None]
  - TREMOR [None]
